FAERS Safety Report 15613258 (Version 2)
Quarter: 2018Q4

REPORT INFORMATION
  Report Type: Spontaneous
  Country: BE (occurrence: BE)
  Receive Date: 20181113
  Receipt Date: 20181226
  Transmission Date: 20190205
  Serious: Yes (Other)
  Sender: FDA-Public Use
  Company Number: BE-PFIZER INC-2018459732

PATIENT
  Age: 32 Year
  Sex: Female
  Weight: 62 kg

DRUGS (6)
  1. TRADONAL [Interacting]
     Active Substance: TRAMADOL HYDROCHLORIDE
     Indication: PAIN
     Dosage: 100 MG, 3X/DAY
  2. LORAZEPAM. [Interacting]
     Active Substance: LORAZEPAM
     Indication: BACK PAIN
  3. OXYNORM [Interacting]
     Active Substance: OXYCODONE HYDROCHLORIDE
     Indication: BACK PAIN
  4. OXYNORM [Interacting]
     Active Substance: OXYCODONE HYDROCHLORIDE
     Indication: PAIN
     Dosage: 140 MG, DAILY
  5. TRADONAL [Interacting]
     Active Substance: TRAMADOL HYDROCHLORIDE
     Indication: BACK PAIN
  6. LORAZEPAM. [Suspect]
     Active Substance: LORAZEPAM
     Indication: PAIN
     Dosage: 7.5 MG, 1X/DAY (2-3 PER DAY, 2.5 MG)

REACTIONS (4)
  - Drug dependence [Not Recovered/Not Resolved]
  - Cerebral disorder [Not Recovered/Not Resolved]
  - General physical health deterioration [Not Recovered/Not Resolved]
  - Drug interaction [Not Recovered/Not Resolved]
